FAERS Safety Report 5988735-0 (Version None)
Quarter: 2008Q4

REPORT INFORMATION
  Report Type: 
  Country: None (occurrence: None)
  Receive Date: 20081210
  Receipt Date: 20081202
  Transmission Date: 20090506
  Serious: Yes (Other)
  Sender: FDA-Public Use
  Company Number: PHHY2008AU30752

PATIENT

DRUGS (1)
  1. ACLASTA [Suspect]

REACTIONS (3)
  - ARTHRALGIA [None]
  - LETHARGY [None]
  - SWELLING FACE [None]
